FAERS Safety Report 6383260-X (Version None)
Quarter: 2009Q3

REPORT INFORMATION
  Report Type: 
  Country: None (occurrence: None)
  Receive Date: 20090929
  Receipt Date: 20090910
  Transmission Date: 20100115
  Serious: Yes (Hospitalization)
  Sender: FDA-Public Use
  Company Number: 1-19876244

PATIENT
  Age: 54 Year
  Sex: Female
  Weight: 50.8029 kg

DRUGS (5)
  1. PHENYTOIN SODIUM [Suspect]
     Indication: BRAIN NEOPLASM MALIGNANT
     Dosage: DAILY, ORAL
     Route: 048
     Dates: start: 20050101, end: 20090904
  2. PHENYTOIN SODIUM [Suspect]
     Indication: CONVULSION
     Dosage: DAILY, ORAL
     Route: 048
     Dates: start: 20050101, end: 20090904
  3. AVASTIN [Concomitant]
  4. V-16 (ETOPOSIDE) [Concomitant]
  5. VITAMINS [Concomitant]

REACTIONS (9)
  - BALANCE DISORDER [None]
  - CONVULSION [None]
  - DEHYDRATION [None]
  - DIZZINESS [None]
  - DYSARTHRIA [None]
  - HEADACHE [None]
  - PRODUCT SUBSTITUTION ISSUE [None]
  - VISION BLURRED [None]
  - VISUAL IMPAIRMENT [None]
